FAERS Safety Report 17299039 (Version 2)
Quarter: 2020Q1

REPORT INFORMATION
  Report Type: Spontaneous
  Country: KR (occurrence: KR)
  Receive Date: 20200121
  Receipt Date: 20200213
  Transmission Date: 20200409
  Serious: Yes (Other)
  Sender: FDA-Public Use
  Company Number: KR-PFIZER INC-2020023530

PATIENT
  Age: 57 Year
  Sex: Female

DRUGS (23)
  1. TRASTUZUMAB. [Suspect]
     Active Substance: TRASTUZUMAB
     Dosage: UNK, CYCLIC (6 CYCLES OF TRASTUZUMAB PLUS PACLITAXEL)
     Dates: start: 20180420, end: 20180810
  2. FLUOROURACIL. [Suspect]
     Active Substance: FLUOROURACIL
     Indication: BREAST CANCER
  3. LETROZOLE. [Suspect]
     Active Substance: LETROZOLE
     Indication: METASTASES TO LUNG
     Dosage: UNK
     Dates: start: 20120925, end: 20140117
  4. DOCETAXEL. [Suspect]
     Active Substance: DOCETAXEL
     Indication: INVASIVE DUCTAL BREAST CARCINOMA
     Dosage: UNK, CYCLIC, (4 CYCLES)
     Dates: start: 20120615, end: 20120817
  5. LAPATINIB [Suspect]
     Active Substance: LAPATINIB
     Indication: METASTATIC NEOPLASM
     Dosage: UNK, CYCLIC, (24 CYCLES)
     Dates: start: 20140325, end: 20150723
  6. CYCLOPHOSPHAMIDE. [Suspect]
     Active Substance: CYCLOPHOSPHAMIDE
     Indication: INVASIVE DUCTAL BREAST CARCINOMA
     Dosage: UNK, CYCLIC, (4 CYCLES)
     Dates: start: 20120324, end: 20120525
  7. METHOTREXATE SODIUM. [Suspect]
     Active Substance: METHOTREXATE SODIUM
     Indication: BREAST CANCER
  8. FLUOROURACIL. [Suspect]
     Active Substance: FLUOROURACIL
     Indication: METASTASES TO LUNG
     Dosage: UNK, CYCLIC, (3 CYCLES)
     Dates: start: 20180125, end: 20180316
  9. VINORELBINE [Suspect]
     Active Substance: VINORELBINE TARTRATE
     Indication: METASTASES TO LUNG
     Dosage: UNK, CYCLIC (19 CYCLES OF TRASTUZUMAB PLUS VINORELBINE)
     Dates: start: 20150821, end: 20161014
  10. CAPECITABINE. [Suspect]
     Active Substance: CAPECITABINE
     Indication: METASTATIC NEOPLASM
     Dosage: UNK, CYCLIC
     Dates: start: 20140325, end: 20150723
  11. LETROZOLE. [Suspect]
     Active Substance: LETROZOLE
     Indication: INVASIVE DUCTAL BREAST CARCINOMA
     Dosage: UNK, CYCLIC,(18 CYCLES (TRASTUZUMAB PLUS LETROZOLE))
     Dates: start: 20120925, end: 20130916
  12. ADO-TRASTUZUMAB EMTANSINE. [Suspect]
     Active Substance: ADO-TRASTUZUMAB EMTANSINE
     Indication: BREAST CANCER
  13. PACLITAXEL. [Suspect]
     Active Substance: PACLITAXEL
     Indication: METASTASES TO LUNG
     Dosage: UNK, CYCLIC (UNK, CYCLIC,6 CYCLES)
     Dates: start: 20180420, end: 20180810
  14. PACLITAXEL. [Suspect]
     Active Substance: PACLITAXEL
     Indication: BREAST CANCER
  15. TRASTUZUMAB. [Suspect]
     Active Substance: TRASTUZUMAB
     Indication: INVASIVE DUCTAL BREAST CARCINOMA
     Dosage: UNK, CYCLIC (18 CYCLES)
     Dates: start: 20120925, end: 20130916
  16. METHOTREXATE SODIUM. [Suspect]
     Active Substance: METHOTREXATE SODIUM
     Indication: METASTASES TO LUNG
     Dosage: UNK, CYCLIC (3 CYCLES)
     Dates: start: 20180125, end: 20180316
  17. LAPATINIB [Suspect]
     Active Substance: LAPATINIB
     Indication: BREAST CANCER
  18. CAPECITABINE. [Suspect]
     Active Substance: CAPECITABINE
     Indication: BREAST CANCER
  19. DOXORUBICIN [Suspect]
     Active Substance: DOXORUBICIN
     Indication: INVASIVE DUCTAL BREAST CARCINOMA
     Dosage: UNK, CYCLIC,(4 CYCLES)
     Dates: start: 20120324, end: 20120525
  20. TRASTUZUMAB. [Suspect]
     Active Substance: TRASTUZUMAB
     Indication: METASTASES TO LUNG
     Dosage: UNK, CYCLIC (19 CYCLES OF TRASTUZUMAB PLUS VINORELBINE)
     Dates: start: 20150821, end: 20161014
  21. CYCLOPHOSPHAMIDE. [Suspect]
     Active Substance: CYCLOPHOSPHAMIDE
     Dosage: UNK, CYCLIC, (3 CYCLES)
     Dates: start: 20180125, end: 20180316
  22. VINORELBINE [Suspect]
     Active Substance: VINORELBINE TARTRATE
     Indication: BREAST CANCER
  23. ADO-TRASTUZUMAB EMTANSINE. [Suspect]
     Active Substance: ADO-TRASTUZUMAB EMTANSINE
     Indication: METASTASES TO LUNG
     Dosage: UNK, CYCLIC,(19 CYCLES)
     Dates: start: 20161108, end: 20171204

REACTIONS (2)
  - Myelodysplastic syndrome [Recovering/Resolving]
  - Second primary malignancy [Recovering/Resolving]

NARRATIVE: CASE EVENT DATE: 201810
